FAERS Safety Report 16770667 (Version 1)
Quarter: 2019Q3

REPORT INFORMATION
  Report Type: Report from Study
  Country: TR (occurrence: TR)
  Receive Date: 20190904
  Receipt Date: 20190904
  Transmission Date: 20191005
  Serious: Yes (Hospitalization)
  Sender: FDA-Public Use
  Company Number: TR-BIOGEN-2019BI00780628

PATIENT
  Age: 5 Month
  Sex: Female
  Weight: 8 kg

DRUGS (1)
  1. SPINRAZA [Suspect]
     Active Substance: NUSINERSEN
     Indication: SPINAL MUSCULAR ATROPHY
     Route: 008
     Dates: start: 20190819, end: 20190819

REACTIONS (1)
  - Petechiae [Recovered/Resolved]

NARRATIVE: CASE EVENT DATE: 20190819
